FAERS Safety Report 11636645 (Version 1)
Quarter: 2015Q4

REPORT INFORMATION
  Report Type: Spontaneous
  Country: US (occurrence: None)
  Receive Date: 20151015
  Receipt Date: 20151015
  Transmission Date: 20160304
  Serious: Yes (Disabling, Other)
  Sender: FDA-Public Use
  Company Number: None

PATIENT
  Age: 37 Year
  Sex: Male
  Weight: 91.17 kg

DRUGS (24)
  1. TAMSULOSIN [Concomitant]
     Active Substance: TAMSULOSIN
  2. MAGNESIUM OXIDE. [Concomitant]
     Active Substance: MAGNESIUM OXIDE
  3. METFORMIN [Concomitant]
     Active Substance: METFORMIN HYDROCHLORIDE
  4. VISION FORMULA [Concomitant]
  5. COENZYME Q10 [Concomitant]
     Active Substance: UBIDECARENONE
  6. ASPRIN [Concomitant]
     Active Substance: ASPIRIN
  7. LOSARTAN. [Concomitant]
     Active Substance: LOSARTAN
  8. CALCIUM [Concomitant]
     Active Substance: CALCIUM
  9. LORATADINE. [Concomitant]
     Active Substance: LORATADINE
  10. AMLODIPINE [Concomitant]
     Active Substance: AMLODIPINE BESYLATE
  11. MAGNESIUM [Concomitant]
     Active Substance: MAGNESIUM
  12. LEVOTHYROXINE. [Concomitant]
     Active Substance: LEVOTHYROXINE
  13. ATORVASTATIN [Concomitant]
     Active Substance: ATORVASTATIN
  14. MULTIVITAMIN [Concomitant]
     Active Substance: VITAMINS
  15. VITAMIN A + D [Concomitant]
  16. VITAMIN D3 [Concomitant]
     Active Substance: CHOLECALCIFEROL
  17. CHLORPHEIRAMINE MALEATE [Concomitant]
  18. FINASTERIDE. [Concomitant]
     Active Substance: FINASTERIDE
  19. FOLIC ACID. [Concomitant]
     Active Substance: FOLIC ACID
  20. LUTEIN/ZEATCHIN [Concomitant]
  21. ACETAMIOPHEN [Concomitant]
  22. GEODON [Suspect]
     Active Substance: ZIPRASIDONE HYDROCHLORIDE\ZIPRASIDONE MESYLATE
     Indication: SCHIZOPHRENIA, PARANOID TYPE
     Route: 048
     Dates: end: 2010
  23. AVODART [Concomitant]
     Active Substance: DUTASTERIDE
  24. IRON [Concomitant]
     Active Substance: IRON

REACTIONS (2)
  - Diabetes mellitus [None]
  - Diabetic complication [None]

NARRATIVE: CASE EVENT DATE: 2002
